FAERS Safety Report 25338914 (Version 2)
Quarter: 2025Q2

REPORT INFORMATION
  Report Type: Report from Study
  Country: US (occurrence: US)
  Receive Date: 20250520
  Receipt Date: 20250613
  Transmission Date: 20250716
  Serious: No
  Sender: ABBVIE
  Company Number: US-ABBVIE-6287125

PATIENT
  Age: 34 Year
  Sex: Male

DRUGS (1)
  1. RINVOQ [Suspect]
     Active Substance: UPADACITINIB
     Indication: Colitis ulcerative
     Dosage: STRENGTH: 45 MG
     Route: 048
     Dates: start: 20250302

REACTIONS (3)
  - Dizziness [Unknown]
  - Hyperhidrosis [Unknown]
  - Vomiting [Unknown]

NARRATIVE: CASE EVENT DATE: 20250101
